FAERS Safety Report 9762785 (Version 1)
Quarter: 2013Q4

REPORT INFORMATION
  Report Type: Spontaneous
  Country: DK (occurrence: IT)
  Receive Date: 20131216
  Receipt Date: 20131216
  Transmission Date: 20140711
  Serious: Yes (Hospitalization)
  Sender: FDA-Public Use
  Company Number: IT-FRI-1000052282

PATIENT
  Age: 86 Year
  Sex: Female

DRUGS (12)
  1. ESCITALOPRAM [Suspect]
     Indication: INTENTIONAL OVERDOSE
     Route: 048
     Dates: start: 20130417, end: 20130417
  2. METFORMIN [Suspect]
     Indication: INTENTIONAL OVERDOSE
     Route: 048
     Dates: start: 20130417, end: 20130417
  3. BISOPROLOL HEMIFUMARATE [Suspect]
     Indication: INTENTIONAL OVERDOSE
     Route: 048
     Dates: start: 20130417, end: 20130417
  4. TAVOR [Suspect]
     Indication: INTENTIONAL OVERDOSE
     Dates: start: 20130417, end: 20130417
  5. DIAMICRON [Suspect]
     Indication: INTENTIONAL OVERDOSE
     Route: 048
     Dates: start: 20130417, end: 20130417
  6. TACHIPIRINA [Suspect]
     Indication: INTENTIONAL OVERDOSE
     Route: 048
     Dates: start: 20130417, end: 20130417
  7. SERENASE [Suspect]
     Indication: INTENTIONAL OVERDOSE
     Route: 048
     Dates: start: 20130417, end: 20130417
  8. COUMADIN [Concomitant]
  9. DIBASE [Concomitant]
     Dosage: 1 VIAL / MONTH
     Route: 030
  10. NEXIUM [Concomitant]
  11. ISOPTIN [Concomitant]
  12. ONLIGOL [Concomitant]

REACTIONS (4)
  - Bradycardia [Recovered/Resolved]
  - Psychomotor hyperactivity [Recovered/Resolved]
  - Sopor [Recovered/Resolved]
  - Intentional overdose [Recovered/Resolved]
